FAERS Safety Report 6870917-7 (Version None)
Quarter: 2010Q2

REPORT INFORMATION
  Report Type: 
  Country: None (occurrence: None)
  Receive Date: 20100610
  Receipt Date: 20100319
  Transmission Date: 20101027
  Serious: No
  Sender: FDA-Public Use
  Company Number: 2010SP017484

PATIENT
  Sex: Male

DRUGS (6)
  1. SAPHRIS [Suspect]
     Indication: DRUG USE FOR UNKNOWN INDICATION
     Dosage: 5 MG
  2. CLOZARIL [Concomitant]
  3. ABILIFY [Concomitant]
  4. ATARAX [Concomitant]
  5. HYDROCHLOROTHIAZIDE [Concomitant]
  6. MOBAN [Concomitant]

REACTIONS (1)
  - DYSGEUSIA [None]
